FAERS Safety Report 6019194-X (Version None)
Quarter: 2008Q4

REPORT INFORMATION
  Report Type: 
  Country: None (occurrence: None)
  Receive Date: 20081224
  Receipt Date: 20081217
  Transmission Date: 20090506
  Serious: Yes (Other)
  Sender: FDA-Public Use
  Company Number: FI-PFIZER INC-2008150309

PATIENT

DRUGS (8)
  1. SALAZOPYRIN [Suspect]
     Indication: TUBERCULOSIS
     Dosage: 1000 MG, 2X/DAY
     Route: 048
  2. METHOTREXATE SODIUM [Suspect]
     Indication: PSORIATIC ARTHROPATHY
     Dosage: 15 MG, WEEKLY
     Route: 048
  3. REMICADE [Suspect]
     Indication: PSORIATIC ARTHROPATHY
     Dosage: 200 MG, UNK
     Route: 042
     Dates: start: 20071115, end: 20080101
  4. RIMAPEN [Suspect]
     Indication: LYMPH NODE TUBERCULOSIS
     Dosage: 600 MG, 1X/DAY
     Dates: start: 20080301, end: 20080903
  5. TUBILYSIN [Suspect]
     Indication: LYMPH NODE TUBERCULOSIS
     Dosage: 300 MG, 1X/DAY
     Dates: start: 20080301, end: 20080903
  6. TISAMID [Suspect]
     Indication: LYMPH NODE TUBERCULOSIS
     Dosage: 1.5 G, 1X/DAY
     Dates: start: 20080301, end: 20080903
  7. OLMETEC [Concomitant]
     Indication: HYPERTONIA
     Dosage: 10 MG, 1X/DAY
     Route: 065
  8. VITAMIN B [Concomitant]
     Indication: LYMPH NODE TUBERCULOSIS
     Dosage: UNK
     Dates: start: 20080301

REACTIONS (3)
  - HEPATIC ENZYME INCREASED [None]
  - LYMPH NODE TUBERCULOSIS [None]
  - STAPHYLOCOCCAL ABSCESS [None]
